FAERS Safety Report 8167531-2 (Version None)
Quarter: 2012Q1

REPORT INFORMATION
  Report Type: 
  Country: None (occurrence: None)
  Receive Date: 20120227
  Receipt Date: 20120223
  Transmission Date: 20120608
  Serious: Yes (Hospitalization)
  Sender: FDA-Public Use
  Company Number: DK-ROCHE-1036549

PATIENT
  Sex: Female
  Weight: 64 kg

DRUGS (16)
  1. CYCLOPHOSPHAMIDE [Suspect]
     Indication: B-CELL LYMPHOMA
     Route: 042
     Dates: start: 20120123
  2. RITUXAN [Suspect]
     Route: 042
     Dates: start: 20120218
  3. DOXORUBICIN HCL [Suspect]
     Indication: B-CELL LYMPHOMA
     Route: 042
     Dates: start: 20120123
  4. TENORETIC 100 [Concomitant]
     Indication: HYPERTENSION
     Dosage: 50+ 0.5
     Route: 048
  5. CYCLOPHOSPHAMIDE [Suspect]
     Route: 042
     Dates: start: 20120213
  6. PREDNISONE TAB [Suspect]
     Indication: B-CELL LYMPHOMA
     Route: 048
     Dates: start: 20120123
  7. VINCRISTINE [Suspect]
     Indication: B-CELL LYMPHOMA
     Route: 042
     Dates: start: 20120123
  8. PREDNISONE TAB [Suspect]
     Route: 048
     Dates: start: 20120213
  9. PANTOPRAZOLE [Concomitant]
     Route: 048
     Dates: start: 20120105
  10. MIRTAZAPINE [Concomitant]
     Route: 048
     Dates: start: 20111219
  11. VENLAFAXINE [Concomitant]
     Route: 048
     Dates: start: 20120105
  12. DOXORUBICIN HCL [Suspect]
     Route: 042
     Dates: start: 20120213
  13. FILGRASTIM [Suspect]
     Indication: B-CELL LYMPHOMA
     Route: 058
     Dates: start: 20120128
  14. FILGRASTIM [Suspect]
     Route: 058
     Dates: start: 20120214
  15. RITUXAN [Suspect]
     Indication: B-CELL LYMPHOMA
     Route: 042
     Dates: start: 20120123
  16. SIMVASTATIN [Concomitant]
     Indication: BLOOD CHOLESTEROL
     Route: 048
     Dates: start: 20100917

REACTIONS (2)
  - WEIGHT DECREASED [None]
  - ORAL CANDIDIASIS [None]
